FAERS Safety Report 4744537-4 (Version None)
Quarter: 2005Q3

REPORT INFORMATION
  Report Type: 
  Country: None (occurrence: None)
  Receive Date: 20050809
  Receipt Date: 20040901
  Transmission Date: 20060218
  Serious: Yes (Hospitalization)
  Sender: FDA-Public Use
  Company Number: 2004-119974-NL

PATIENT
  Age: 58 Year
  Sex: Female
  Weight: 132 kg

DRUGS (5)
  1. REMERON [Suspect]
     Indication: DEPRESSION
     Dosage: 30 MG DAILY ORAL
     Route: 048
  2. PAXIL [Concomitant]
  3. PREVACID [Concomitant]
  4. HYTRIN [Concomitant]
  5. MACRODANTIN [Concomitant]

REACTIONS (2)
  - AGRANULOCYTOSIS [None]
  - HERPES ZOSTER [None]
